FAERS Safety Report 15538249 (Version 1)
Quarter: 2018Q4

REPORT INFORMATION
  Report Type: Spontaneous
  Country: IE (occurrence: IE)
  Receive Date: 20181022
  Receipt Date: 20181022
  Transmission Date: 20190205
  Serious: Yes (Other)
  Sender: FDA-Public Use
  Company Number: IE-PFIZER INC-2018420694

PATIENT
  Age: 54 Year

DRUGS (20)
  1. ALDACTONE [Suspect]
     Active Substance: SPIRONOLACTONE
     Dosage: 1 UNK, 1X/DAY (25 OT, QD)
     Route: 065
  2. FUROSEMIDE. [Suspect]
     Active Substance: FUROSEMIDE
     Dosage: UNK (40 ALT DIE)
     Route: 065
  3. RAMIPRIL. [Suspect]
     Active Substance: RAMIPRIL
     Dosage: 1 UNK, UNK (7.5 OT, QD)
     Route: 065
  4. BUMETANIDE. [Suspect]
     Active Substance: BUMETANIDE
     Dosage: 2 MG, UNK
     Route: 065
  5. RAMIPRIL. [Suspect]
     Active Substance: RAMIPRIL
     Dosage: 1 UNK, 1X/DAY (2.5 OT, QD)
     Route: 065
  6. BISOPROLOL FUMARATE. [Suspect]
     Active Substance: BISOPROLOL FUMARATE
     Dosage: 1 UNK, 1X/DAY (3.75 OT, QD)
     Route: 065
  7. RAMIPRIL. [Suspect]
     Active Substance: RAMIPRIL
     Dosage: 1 UNK, 1X/DAY (1.25 OT, QD)
     Route: 065
  8. DIGOXIN. [Suspect]
     Active Substance: DIGOXIN
     Dosage: UNK
     Route: 065
  9. BISOPROLOL FUMARATE. [Suspect]
     Active Substance: BISOPROLOL FUMARATE
     Dosage: 1 UNK, 1X/DAY (10 OT, QD)
     Route: 065
  10. BISOPROLOL FUMARATE. [Suspect]
     Active Substance: BISOPROLOL FUMARATE
     Dosage: 1 UNK, 1X/DAY (5 OT, QD)
     Route: 065
  11. RAMIPRIL. [Suspect]
     Active Substance: RAMIPRIL
     Dosage: 1 UNK, 1X/DAY (5 OT, QD)
     Route: 065
  12. RAMIPRIL. [Suspect]
     Active Substance: RAMIPRIL
     Dosage: 1 UNK, 1X/DAY (10 OT, QD)
     Route: 065
  13. AMIODARONE [Suspect]
     Active Substance: AMIODARONE
     Dosage: 200 MG, 1X/DAY (200 MG, QD)
     Route: 065
  14. BISOPROLOL FUMARATE. [Suspect]
     Active Substance: BISOPROLOL FUMARATE
     Dosage: 1 UNK, 1X/DAY (7.5 OT, UNK)
     Route: 065
  15. BISOPROLOL FUMARATE. [Suspect]
     Active Substance: BISOPROLOL FUMARATE
     Dosage: 7.5 MG, UNK
     Route: 065
  16. BISOPROLOL FUMARATE. [Suspect]
     Active Substance: BISOPROLOL FUMARATE
     Dosage: 1 UNK, 1X/DAY (2.5 OT, QD)
     Route: 065
  17. BISOPROLOL FUMARATE. [Suspect]
     Active Substance: BISOPROLOL FUMARATE
     Dosage: 1 UNK, 1X/DAY (1.25 OT, QD)
     Route: 065
  18. FUROSEMIDE. [Suspect]
     Active Substance: FUROSEMIDE
     Dosage: 1 UNK, 1X/DAY (40 OT, QD)
     Route: 065
  19. ENTRESTO [Suspect]
     Active Substance: SACUBITRIL\VALSARTAN
     Dosage: UNK (24/26 OT BD)
     Route: 065
  20. BUMETANIDE. [Suspect]
     Active Substance: BUMETANIDE
     Dosage: 1 MG, 1X/DAY (1 MG, QD)
     Route: 065

REACTIONS (8)
  - Orthostatic hypotension [Unknown]
  - Cardiac failure chronic [Recovering/Resolving]
  - Ejection fraction decreased [Unknown]
  - Orthopnoea [Unknown]
  - Oedema peripheral [Unknown]
  - Fatigue [Unknown]
  - Contraindicated product administered [Unknown]
  - Blood pressure systolic decreased [Recovering/Resolving]
